FAERS Safety Report 6021366-5 (Version None)
Quarter: 2008Q4

REPORT INFORMATION
  Report Type: 
  Country: None (occurrence: None)
  Receive Date: 20081229
  Receipt Date: 20081218
  Transmission Date: 20090506
  Serious: Yes (Other)
  Sender: FDA-Public Use
  Company Number: B0547369A

PATIENT
  Age: 37 Year
  Sex: Female
  Weight: 50 kg

DRUGS (1)
  1. PAROXETINE HCL [Suspect]
     Indication: PANIC DISORDER
     Dosage: 20MG PER DAY
     Route: 048
     Dates: start: 20070927, end: 20080701

REACTIONS (13)
  - AGGRESSION [None]
  - ANGER [None]
  - CONSTIPATION [None]
  - DEPRESSION [None]
  - FEAR [None]
  - HEADACHE [None]
  - INSOMNIA [None]
  - LEGAL PROBLEM [None]
  - MOOD ALTERED [None]
  - MUSCLE TWITCHING [None]
  - TINNITUS [None]
  - VISION BLURRED [None]
  - YAWNING [None]
